FAERS Safety Report 4308939-2 (Version None)
Quarter: 2004Q1

REPORT INFORMATION
  Report Type: 
  Country: None (occurrence: None)
  Receive Date: 20040227
  Receipt Date: 20040217
  Transmission Date: 20041129
  Serious: Yes (Hospitalization)
  Sender: FDA-Public Use
  Company Number: 2004199642US

PATIENT
  Age: 10 Year
  Sex: Male
  Weight: 31.8 kg

DRUGS (6)
  1. GENOTROPIN [Suspect]
     Indication: HYPOPITUITARISM
     Dosage: SUBCUTANEOUS
     Route: 058
     Dates: start: 20010624, end: 20030730
  2. RISPERALAL [Concomitant]
  3. ADDERALL (DEXAMFETAMINE SACCHARATE,AMFETAMINE SULFATE, DEXAMFETAMINE S [Concomitant]
  4. SEROQUEL [Concomitant]
  5. ZOLOFT [Concomitant]
  6. LAMICTAL [Concomitant]

REACTIONS (3)
  - AGGRESSION [None]
  - CONDITION AGGRAVATED [None]
  - IRRITABILITY [None]
